FAERS Safety Report 15960586 (Version 1)
Quarter: 2019Q1

REPORT INFORMATION
  Report Type: Spontaneous
  Country: CA (occurrence: CA)
  Receive Date: 20190214
  Receipt Date: 20190214
  Transmission Date: 20190417
  Serious: Yes (Hospitalization)
  Sender: FDA-Public Use
  Company Number: CA-TEVA-2019-CA-1012527

PATIENT
  Age: 66 Year
  Sex: Male

DRUGS (5)
  1. DUTASTERIDE. [Concomitant]
     Active Substance: DUTASTERIDE
  2. ASA [Concomitant]
     Active Substance: ASPIRIN
  3. TEVA-DILTIAZEM HCL ER CAPSULES [Concomitant]
     Active Substance: DILTIAZEM HYDROCHLORIDE
  4. OLMESARTAN [Suspect]
     Active Substance: OLMESARTAN
     Indication: HYPERTENSION
     Dosage: 40 MILLIGRAM DAILY;
  5. ROSUVASTATIN. [Concomitant]
     Active Substance: ROSUVASTATIN

REACTIONS (20)
  - Abdominal pain upper [Recovered/Resolved]
  - Diarrhoea [Recovered/Resolved]
  - Weight decreased [Recovered/Resolved]
  - Fluid replacement [Recovered/Resolved]
  - Coeliac disease [Recovered/Resolved]
  - Blood creatinine increased [Recovered/Resolved]
  - Blood urea increased [Recovered/Resolved]
  - Clostridium test negative [Recovered/Resolved]
  - Acute kidney injury [Recovered/Resolved]
  - Gastric mucosa erythema [Recovered/Resolved]
  - Sleep disorder [Recovered/Resolved]
  - Blood potassium decreased [Recovered/Resolved]
  - Hiatus hernia [Recovered/Resolved]
  - Lymphocytosis [Recovered/Resolved]
  - Nausea [Recovered/Resolved]
  - Parasite stool test negative [Recovered/Resolved]
  - Vomiting [Recovered/Resolved]
  - Intestinal villi atrophy [Recovered/Resolved]
  - Anal incontinence [Recovered/Resolved]
  - Polyp [Recovered/Resolved]
